FAERS Safety Report 5908909-4 (Version None)
Quarter: 2008Q4

REPORT INFORMATION
  Report Type: 
  Country: None (occurrence: None)
  Receive Date: 20081006
  Receipt Date: 20080926
  Transmission Date: 20090506
  Serious: Yes (Other)
  Sender: FDA-Public Use
  Company Number: JP-MERCK-0809USA01881

PATIENT
  Age: 53 Year
  Sex: Male

DRUGS (2)
  1. ZETIA [Suspect]
     Indication: HYPERLIPIDAEMIA
     Route: 048
     Dates: start: 20080524, end: 20080717
  2. ATORVASTATIN CALCIUM [Concomitant]
     Route: 065
     Dates: start: 20060101

REACTIONS (1)
  - ANAEMIA [None]
